FAERS Safety Report 13451864 (Version 1)
Quarter: 2017Q2

REPORT INFORMATION
  Report Type: Report from Study
  Country: DE (occurrence: DE)
  Receive Date: 20170418
  Receipt Date: 20170418
  Transmission Date: 20170830
  Serious: Yes (Hospitalization)
  Sender: FDA-Public Use
  Company Number: DE-ROCHE-1380955

PATIENT
  Age: 46 Year
  Sex: Female
  Weight: 54.1 kg

DRUGS (39)
  1. MONURIL [Concomitant]
     Active Substance: FOSFOMYCIN SODIUM
     Indication: URINARY TRACT INFECTION
     Route: 065
     Dates: start: 20130409, end: 20130409
  2. VITAMIN B COMPLEX [Concomitant]
     Active Substance: CYANOCOBALAMIN\DEXPANTHENOL\NIACINAMIDE\PYRIDOXINE HYDROCHLORIDE\RIBOFLAVIN 5^-PHOSPHATE SODIUM\THIAMINE HYDROCHLORIDE\VITAMIN B COMPLEX
     Indication: NUTRITIONAL SUPPLEMENTATION
     Route: 048
     Dates: start: 20140201
  3. NALTREXONE [Concomitant]
     Active Substance: NALTREXONE
     Dosage: INDICATION: MS MOBILITY IMBALANCE
     Route: 065
     Dates: start: 20140201
  4. OCRELIZUMAB [Suspect]
     Active Substance: OCRELIZUMAB
     Route: 042
     Dates: start: 20130326, end: 20130326
  5. AERIUS (GERMANY) [Concomitant]
     Indication: PREMEDICATION
     Route: 065
     Dates: start: 20121010, end: 20121010
  6. METHYLPREDNISOLONE. [Concomitant]
     Active Substance: METHYLPREDNISOLONE
     Route: 065
     Dates: start: 20130409, end: 20130409
  7. NOVALGIN [Concomitant]
     Active Substance: METAMIZOLE SODIUM
     Route: 065
     Dates: start: 20131128, end: 20131129
  8. FAMPRIDINE [Concomitant]
     Active Substance: DALFAMPRIDINE
     Dosage: 1 MORNINGS. 1 EVENINGS
     Route: 065
  9. AERIUS (GERMANY) [Concomitant]
     Route: 065
     Dates: start: 20130326, end: 20130326
  10. FENISTIL (GERMANY) [Concomitant]
     Route: 065
     Dates: start: 20121025, end: 20121025
  11. METHYLPREDNISOLONE. [Concomitant]
     Active Substance: METHYLPREDNISOLONE
     Route: 065
     Dates: start: 20121025, end: 20121025
  12. PARACETAMOL [Concomitant]
     Active Substance: ACETAMINOPHEN
     Route: 065
     Dates: start: 20130409, end: 20130409
  13. PARACETAMOL [Concomitant]
     Active Substance: ACETAMINOPHEN
     Route: 065
     Dates: start: 20121014, end: 20121014
  14. L-THYROXINE [Concomitant]
     Active Substance: LEVOTHYROXINE
     Indication: HYPOTHYROIDISM
     Dosage: 1 MORNINGS
     Route: 065
     Dates: start: 2010
  15. OCRELIZUMAB [Suspect]
     Active Substance: OCRELIZUMAB
     Route: 042
     Dates: start: 20130409, end: 20130409
  16. FENISTIL (GERMANY) [Concomitant]
     Indication: PREMEDICATION
     Route: 065
     Dates: start: 20121010, end: 20121010
  17. FENISTIL (GERMANY) [Concomitant]
     Route: 065
     Dates: start: 20130326, end: 20130326
  18. FENISTIL (GERMANY) [Concomitant]
     Route: 065
     Dates: start: 20130409, end: 20130409
  19. METHYLPREDNISOLONE. [Concomitant]
     Active Substance: METHYLPREDNISOLONE
     Route: 065
     Dates: start: 20130326, end: 20130326
  20. PARACETAMOL [Concomitant]
     Active Substance: ACETAMINOPHEN
     Indication: PREMEDICATION
     Route: 065
     Dates: start: 20121010, end: 20121010
  21. PARACETAMOL [Concomitant]
     Active Substance: ACETAMINOPHEN
     Indication: HEADACHE
     Route: 065
     Dates: start: 20121025, end: 20121025
  22. SATIVEX [Concomitant]
     Active Substance: NABIXIMOLS
     Indication: MUSCLE SPASTICITY
     Route: 065
     Dates: start: 20130607, end: 20130608
  23. VIGANTOLETTEN [Concomitant]
     Active Substance: CHOLECALCIFEROL
     Indication: VITAMIN D DECREASED
     Route: 065
     Dates: start: 20130405, end: 20131215
  24. CEFTRIAXONE. [Concomitant]
     Active Substance: CEFTRIAXONE
     Indication: PROPHYLAXIS
     Route: 065
     Dates: start: 201309, end: 201309
  25. PARACETAMOL [Concomitant]
     Active Substance: ACETAMINOPHEN
     Route: 065
     Dates: start: 20130326, end: 20130326
  26. FAMPYRA [Concomitant]
     Active Substance: DALFAMPRIDINE
     Indication: MULTIPLE SCLEROSIS
     Route: 065
     Dates: start: 20120120
  27. FAMPYRA [Concomitant]
     Active Substance: DALFAMPRIDINE
     Indication: GAIT DISTURBANCE
  28. NOVALGIN [Concomitant]
     Active Substance: METAMIZOLE SODIUM
     Indication: HEADACHE
     Route: 065
     Dates: start: 20131121, end: 20131121
  29. PANTOPRAZOL [Concomitant]
     Active Substance: PANTOPRAZOLE SODIUM
     Indication: DYSPHAGIA
     Route: 065
     Dates: start: 20130718
  30. OCRELIZUMAB [Suspect]
     Active Substance: OCRELIZUMAB
     Indication: PRIMARY PROGRESSIVE MULTIPLE SCLEROSIS
     Dosage: ADMINISTERED AS TWO INTRAVENOUS INFUSIONS, SEPARATED BY 14 DAYS, EVERY 24 WEEKS.?VERY LAST INFUSION
     Route: 042
     Dates: start: 20121010, end: 20121010
  31. OCRELIZUMAB [Suspect]
     Active Substance: OCRELIZUMAB
     Route: 042
     Dates: start: 20121025, end: 20121025
  32. AERIUS (GERMANY) [Concomitant]
     Route: 065
     Dates: start: 20121025, end: 20121025
  33. AERIUS (GERMANY) [Concomitant]
     Route: 065
     Dates: start: 20130409, end: 20130409
  34. METHYLPREDNISOLONE. [Concomitant]
     Active Substance: METHYLPREDNISOLONE
     Indication: PREMEDICATION
     Route: 065
     Dates: start: 20121010, end: 20121010
  35. PARACETAMOL [Concomitant]
     Active Substance: ACETAMINOPHEN
     Route: 065
     Dates: start: 20130903, end: 20130905
  36. ASPIRIN. [Concomitant]
     Active Substance: ASPIRIN
     Indication: HEADACHE
     Route: 065
     Dates: start: 20121024, end: 20121024
  37. BACLOFEN. [Concomitant]
     Active Substance: BACLOFEN
     Indication: MUSCLE SPASTICITY
     Route: 065
     Dates: start: 20130402, end: 20130404
  38. IBUPROFEN. [Concomitant]
     Active Substance: IBUPROFEN
     Indication: HEADACHE
     Route: 065
     Dates: start: 20131127, end: 20131127
  39. SIRDALUD [Concomitant]
     Active Substance: TIZANIDINE
     Indication: MUSCLE SPASTICITY
     Route: 065
     Dates: start: 20140110, end: 20140117

REACTIONS (1)
  - Pneumonia [Recovered/Resolved]

NARRATIVE: CASE EVENT DATE: 20140228
